FAERS Safety Report 16036827 (Version 6)
Quarter: 2019Q2

REPORT INFORMATION
  Report Type: Report from Study
  Country: BE (occurrence: BE)
  Receive Date: 20190305
  Receipt Date: 20190523
  Transmission Date: 20190711
  Serious: Yes (Life-Threatening, Hospitalization)
  Sender: FDA-Public Use
  Company Number: BE-ROCHE-2223612

PATIENT
  Age: 65 Year
  Sex: Male
  Weight: 70.3 kg

DRUGS (18)
  1. CLEXANE [Concomitant]
     Active Substance: ENOXAPARIN SODIUM
     Route: 065
     Dates: start: 20181204
  2. ATROVENT [Concomitant]
     Active Substance: IPRATROPIUM BROMIDE
     Dosage: 1 AMPOULE
     Route: 065
     Dates: start: 20181128
  3. CLEXANE [Concomitant]
     Active Substance: ENOXAPARIN SODIUM
     Route: 065
     Dates: start: 20181122
  4. LITICAN [ALIZAPRIDE HYDROCHLORIDE] [Concomitant]
     Route: 065
     Dates: start: 20181122
  5. LASIX [Concomitant]
     Active Substance: FUROSEMIDE
     Route: 065
     Dates: start: 20190118
  6. OXYGEN. [Concomitant]
     Active Substance: OXYGEN
     Route: 065
     Dates: start: 20181128
  7. ALLOPURINOL. [Concomitant]
     Active Substance: ALLOPURINOL
     Route: 065
     Dates: start: 20181204
  8. FLUCONAZOLE. [Concomitant]
     Active Substance: FLUCONAZOLE
     Route: 065
     Dates: start: 20181205
  9. BACTRIM [Concomitant]
     Active Substance: SULFAMETHOXAZOLE\TRIMETHOPRIM
     Dosage: 800/160 MG
     Route: 065
     Dates: start: 20181123
  10. OBINUTUZUMAB. [Suspect]
     Active Substance: OBINUTUZUMAB
     Indication: NON-HODGKIN^S LYMPHOMA
     Dosage: PRETREATMENT, EVERY 3 WEEKS AS PER PROTOCOL
     Route: 042
     Dates: start: 20181128
  11. ACICLOVIR [Concomitant]
     Active Substance: ACYCLOVIR
     Route: 065
     Dates: start: 20181205
  12. FASTURTEC [Concomitant]
     Active Substance: RASBURICASE
     Route: 065
     Dates: start: 20181205, end: 20181205
  13. ALLOPURINOL. [Concomitant]
     Active Substance: ALLOPURINOL
     Route: 065
     Dates: start: 20181122, end: 20190117
  14. UREUM [Concomitant]
     Route: 065
     Dates: start: 20181122
  15. DENTIO [Concomitant]
     Route: 065
     Dates: start: 20190118
  16. FLUCONAZOLE. [Concomitant]
     Active Substance: FLUCONAZOLE
     Route: 065
     Dates: start: 20181123
  17. RO7082859 (CD20/C3 T-CELL BISPECIFIC MAB) [Suspect]
     Active Substance: RO-7082859
     Indication: NON-HODGKIN^S LYMPHOMA
     Dosage: LAST DOSE PRIOR TO SAE ON 05/DEC/2018?LAST DOSE PRIOR TO SECOND EPISODE OF CYTOKINE RELEASE SYNDROME
     Route: 042
     Dates: start: 20181205
  18. ACICLOVIR [Concomitant]
     Active Substance: ACYCLOVIR
     Route: 065
     Dates: start: 20181123

REACTIONS (2)
  - Cytokine release syndrome [Recovered/Resolved]
  - Cytokine release syndrome [Recovered/Resolved]

NARRATIVE: CASE EVENT DATE: 20181129
